FAERS Safety Report 9300950 (Version 2)
Quarter: 2013Q2

REPORT INFORMATION
  Report Type: Spontaneous
  Country: US (occurrence: US)
  Receive Date: 20130521
  Receipt Date: 20130611
  Transmission Date: 20140414
  Serious: Yes (Congenital Anomaly, Other)
  Sender: FDA-Public Use
  Company Number: US-PFIZER INC-2013152244

PATIENT
  Sex: Male

DRUGS (8)
  1. ZOLOFT [Suspect]
     Indication: DEPRESSION
     Dosage: UNK
     Route: 064
     Dates: start: 200504
  2. PRENATAL VITAMINS [Concomitant]
     Dosage: UNK
     Route: 064
  3. BUPROPION HYDROCHLORIDE [Concomitant]
     Dosage: UNK
     Route: 064
  4. LAMICTAL [Concomitant]
     Dosage: UNK
     Route: 064
  5. CEPHALEXIN [Concomitant]
     Dosage: UNK
     Route: 064
  6. TYLENOL [Concomitant]
     Dosage: UNK
     Route: 064
  7. MAALOX [Concomitant]
     Dosage: UNK
     Route: 064
  8. HYDROCODONE [Concomitant]
     Dosage: UNK
     Route: 064

REACTIONS (2)
  - Foetal exposure during pregnancy [Unknown]
  - Congenital foot malformation [Unknown]
